FAERS Safety Report 4414640-7 (Version None)
Quarter: 2004Q3

REPORT INFORMATION
  Report Type: 
  Country: None (occurrence: None)
  Receive Date: 20040729
  Receipt Date: 20040715
  Transmission Date: 20050211
  Serious: Yes (Hospitalization)
  Sender: FDA-Public Use
  Company Number: FABR-10678

PATIENT
  Age: 38 Year
  Sex: Male
  Weight: 64 kg

DRUGS (1)
  1. FABRAZYME [Suspect]
     Indication: FABRY'S DISEASE
     Dosage: 60 MG IV
     Route: 042
     Dates: start: 20040605

REACTIONS (1)
  - APPENDICITIS [None]
